FAERS Safety Report 7397343-9 (Version None)
Quarter: 2011Q2

REPORT INFORMATION
  Report Type: 
  Country: None (occurrence: None)
  Receive Date: 20110406
  Receipt Date: 20110404
  Transmission Date: 20111010
  Serious: Yes (Other)
  Sender: FDA-Public Use
  Company Number: CH-PFIZER INC-2011074309

PATIENT
  Age: 60 Year
  Sex: Female

DRUGS (1)
  1. PANTOZOL [Suspect]

REACTIONS (1)
  - HYPOMAGNESAEMIA [None]
